FAERS Safety Report 6921144-6 (Version None)
Quarter: 2010Q3

REPORT INFORMATION
  Report Type: 
  Country: None (occurrence: None)
  Receive Date: 20100804
  Receipt Date: 20090929
  Transmission Date: 20110219
  Serious: No
  Sender: FDA-Public Use
  Company Number: 2009-4074

PATIENT
  Age: 56 Year
  Sex: Female
  Weight: 70.3 kg

DRUGS (5)
  1. SOMATULINE DEPOT [Suspect]
     Indication: ACROMEGALY
     Dosage: (90 MG,1 IN 4 WK), SUBCUTANEOUS
     Route: 058
     Dates: start: 20090501
  2. CALCIUM (CALCIUM) [Concomitant]
  3. VITAMIN D [Concomitant]
  4. MULTIVITAMIN (MULTIVITAMIN /00831701/) [Concomitant]
  5. BIOTIN (BIOTIN) [Concomitant]

REACTIONS (4)
  - ALOPECIA [None]
  - HAIR GROWTH ABNORMAL [None]
  - ONYCHOCLASIS [None]
  - WEIGHT LOSS POOR [None]
